FAERS Safety Report 22527688 (Version 1)
Quarter: 2023Q2

REPORT INFORMATION
  Report Type: Report from Study
  Country: BR (occurrence: BR)
  Receive Date: 20230606
  Receipt Date: 20230606
  Transmission Date: 20230721
  Serious: Yes (Other)
  Sender: FDA-Public Use
  Company Number: BR-002147023-NVSC2023BR127852

PATIENT
  Sex: Female
  Weight: 83 kg

DRUGS (9)
  1. LOSARTAN [Suspect]
     Active Substance: LOSARTAN
     Indication: Product used for unknown indication
     Dosage: 50 MG, TID
     Route: 065
     Dates: start: 2001, end: 20230313
  2. SPIRONOLACTONE [Concomitant]
     Active Substance: SPIRONOLACTONE
     Indication: Hypertension
     Dosage: 1 DOSAGE FORM, QD (AT 2PM, STARTED AFTER HOSPITALIZATION)
     Route: 048
  3. SPIRONOLACTONE [Concomitant]
     Active Substance: SPIRONOLACTONE
     Dosage: UNK (1 TABLET AT 2PM AND HALF A TABLET AT 5PM, STARTED AFTER HOSPITALIZATION)
     Route: 048
  4. AMLODIPINE [Concomitant]
     Active Substance: AMLODIPINE BESYLATE
     Indication: Hypertension
     Dosage: 1 DOSAGE FORM, Q12H (STARTED AFTER HOSPITALIZATION)
     Route: 048
  5. FUROSEMIDE [Concomitant]
     Active Substance: FUROSEMIDE
     Indication: Hypertension
     Dosage: 1 DOSAGE FORM, QD (AT 10AM, STARTED BEFORE THE USE OF ENTRESTO)
     Route: 048
  6. METOPROLOL [Concomitant]
     Active Substance: METOPROLOL
     Indication: Hypertension
     Dosage: 1 DOSAGE FORM, Q12H (STARTED AFTER HOSPITALIZATION)
     Route: 048
  7. SUSTRATE [Concomitant]
     Active Substance: PROPATYL NITRATE
     Indication: Hypertension
     Dosage: 1 DOSAGE FORM, TID (STARTED AFTER HOSPITALIZATION)
     Route: 048
  8. PROPATYL NITRATE [Concomitant]
     Active Substance: PROPATYL NITRATE
     Indication: Hypertension
     Dosage: 1 DOSAGE FORM, TID (STARTED AFTER HOSPITALIZATION)
     Route: 048
  9. SERTRALINE [Concomitant]
     Active Substance: SERTRALINE HYDROCHLORIDE
     Indication: Anxiety
     Dosage: 1 DOSAGE FORM, QD (AT 10AM, STARTED AFTER HOSPITALIZATION)
     Route: 048

REACTIONS (4)
  - Eclampsia [Recovered/Resolved]
  - Complication of pregnancy [Recovered/Resolved]
  - Maternal exposure during pregnancy [Unknown]
  - Normal newborn [Unknown]

NARRATIVE: CASE EVENT DATE: 20010101
